FAERS Safety Report 6932314-5 (Version None)
Quarter: 2010Q3

REPORT INFORMATION
  Report Type: 
  Country: None (occurrence: None)
  Receive Date: 20100813
  Receipt Date: 20100529
  Transmission Date: 20110219
  Serious: No
  Sender: FDA-Public Use
  Company Number: 1000014200

PATIENT
  Age: 69 Year
  Sex: Female

DRUGS (11)
  1. SAVELLA [Suspect]
     Indication: MUSCLE SPASMS
     Dosage: 12.5 MG (12.5 MG, 1 IN D) ORAL; 25 MG (12.5 MG,2 IN1 D), ORAL; 50 MG (25 MG, 2 IN 1 D), ORAL; 100 M,
     Route: 048
     Dates: start: 20091001, end: 20091001
  2. SAVELLA [Suspect]
     Indication: MUSCLE SPASMS
     Dosage: 12.5 MG (12.5 MG, 1 IN D) ORAL; 25 MG (12.5 MG,2 IN1 D), ORAL; 50 MG (25 MG, 2 IN 1 D), ORAL; 100 M,
     Route: 048
     Dates: start: 20091001, end: 20091001
  3. SAVELLA [Suspect]
     Indication: MUSCLE SPASMS
     Dosage: 12.5 MG (12.5 MG, 1 IN D) ORAL; 25 MG (12.5 MG,2 IN1 D), ORAL; 50 MG (25 MG, 2 IN 1 D), ORAL; 100 M,
     Route: 048
     Dates: start: 20091001, end: 20091001
  4. SAVELLA [Suspect]
     Indication: MUSCLE SPASMS
     Dosage: 12.5 MG (12.5 MG, 1 IN D) ORAL; 25 MG (12.5 MG,2 IN1 D), ORAL; 50 MG (25 MG, 2 IN 1 D), ORAL; 100 M,
     Route: 048
     Dates: start: 20091001
  5. ATENOLOL [Concomitant]
  6. GABAPENTIN [Concomitant]
  7. LEVOTHYROXINE SODIUM [Concomitant]
  8. ISOSORBIDE [Concomitant]
  9. PRAVASTATIN [Concomitant]
  10. FLEXERIL [Concomitant]
  11. DEXILANT [Concomitant]

REACTIONS (2)
  - DRUG INEFFECTIVE [None]
  - MEDICATION RESIDUE [None]
